FAERS Safety Report 4582221-0 (Version None)
Quarter: 2005Q1

REPORT INFORMATION
  Report Type: 
  Country: None (occurrence: None)
  Receive Date: 20050214
  Receipt Date: 20050121
  Transmission Date: 20050727
  Serious: Yes (Other)
  Sender: FDA-Public Use
  Company Number: C-05-0005

PATIENT
  Sex: Male

DRUGS (1)
  1. PREDNISOLONE SODIUM PHOSPHATE [Suspect]

REACTIONS (1)
  - URTICARIA [None]
